FAERS Safety Report 11138573 (Version 2)
Quarter: 2015Q3

REPORT INFORMATION
  Report Type: Spontaneous
  Country: FR (occurrence: FR)
  Receive Date: 20150527
  Receipt Date: 20150805
  Transmission Date: 20151125
  Serious: Yes (Hospitalization, Other)
  Sender: FDA-Public Use
  Company Number: FR-ALVOGEN-2015AL002220

PATIENT
  Age: 77 Year
  Sex: Female

DRUGS (8)
  1. FLECAINE [Suspect]
     Active Substance: FLECAINIDE
     Indication: PALPITATIONS
     Route: 048
     Dates: start: 20141124, end: 20141210
  2. JANUMET [Concomitant]
     Active Substance: METFORMIN HYDROCHLORIDE\SITAGLIPTIN PHOSPHATE
     Indication: PRODUCT USED FOR UNKNOWN INDICATION
     Dates: start: 201101, end: 20141216
  3. VALSARTAN/HYDROCHLOROTHIAZIDE [Concomitant]
     Active Substance: HYDROCHLOROTHIAZIDE\VALSARTAN
     Indication: PRODUCT USED FOR UNKNOWN INDICATION
     Dates: start: 201202, end: 20141216
  4. TENORMIN [Suspect]
     Active Substance: ATENOLOL
     Indication: PALPITATIONS
     Route: 048
     Dates: start: 20141124, end: 20141210
  5. DIAMICRON [Concomitant]
     Active Substance: GLICLAZIDE
     Indication: PRODUCT USED FOR UNKNOWN INDICATION
     Dates: start: 20141216
  6. TENORMIN [Suspect]
     Active Substance: ATENOLOL
     Indication: EXTRASYSTOLES
     Route: 048
     Dates: start: 20141124, end: 20141210
  7. AMLOR [Concomitant]
     Active Substance: AMLODIPINE BESYLATE
     Indication: PRODUCT USED FOR UNKNOWN INDICATION
     Dates: end: 20141216
  8. FLECAINE [Suspect]
     Active Substance: FLECAINIDE
     Indication: EXTRASYSTOLES
     Route: 048
     Dates: start: 20141124, end: 20141210

REACTIONS (2)
  - Interstitial lung disease [Recovering/Resolving]
  - Dyspnoea [Recovered/Resolved]

NARRATIVE: CASE EVENT DATE: 20141201
